FAERS Safety Report 5025327-4 (Version None)
Quarter: 2006Q2

REPORT INFORMATION
  Report Type: 
  Country: None (occurrence: None)
  Receive Date: 20060426
  Receipt Date: 20060126
  Transmission Date: 20061013
  Serious: Yes (Other)
  Sender: FDA-Public Use
  Company Number: 2006007664

PATIENT
  Age: 66 Year
  Sex: Female
  Weight: 63 kg

DRUGS (9)
  1. LYRICA [Suspect]
     Indication: RHEUMATOID ARTHRITIS
  2. LANTUS [Suspect]
     Indication: DIABETES MELLITUS NON-INSULIN-DEPENDENT
     Dosage: SUBCUTANEOUS
     Route: 058
  3. ALL OTHER THERAPEUTIC PRODUCTS (ALL OTHER THERAPEUTIC PRODUCTS) [Suspect]
     Indication: DIABETES MELLITUS NON-INSULIN-DEPENDENT
     Route: 065
     Dates: start: 20050401
  4. GUAIFENESIN (GUAIFENESIN) [Suspect]
     Indication: NASOPHARYNGITIS
  5. TRAMADOL HCL [Suspect]
     Indication: NASOPHARYNGITIS
  6. GLUCOTROL [Concomitant]
  7. PLAVIX [Concomitant]
  8. AVANDIA [Concomitant]
  9. LOTREL [Concomitant]

REACTIONS (9)
  - DIABETES MELLITUS INADEQUATE CONTROL [None]
  - EAR DISCOMFORT [None]
  - FEELING ABNORMAL [None]
  - FEELING DRUNK [None]
  - HYPERGLYCAEMIA [None]
  - HYPOGLYCAEMIA [None]
  - NASOPHARYNGITIS [None]
  - UPPER RESPIRATORY TRACT INFECTION [None]
  - VOMITING [None]
